FAERS Safety Report 5124973-7 (Version None)
Quarter: 2006Q4

REPORT INFORMATION
  Report Type: 
  Country: None (occurrence: None)
  Receive Date: 20061011
  Receipt Date: 20061006
  Transmission Date: 20070319
  Serious: Yes (Hospitalization)
  Sender: FDA-Public Use
  Company Number: CA-GLAXOSMITHKLINE-A0622790A

PATIENT
  Age: 15 Year
  Sex: Male

DRUGS (3)
  1. LAMICTAL [Suspect]
     Indication: DRUG USE FOR UNKNOWN INDICATION
     Dosage: 150MG PER DAY
     Route: 065
     Dates: start: 20060731
  2. ZYPREXA [Concomitant]
  3. CHLORPROMAZINE [Concomitant]

REACTIONS (3)
  - PSYCHIATRIC SYMPTOM [None]
  - RASH [None]
  - RASH ERYTHEMATOUS [None]
